FAERS Safety Report 11825323 (Version 1)
Quarter: 2015Q4

REPORT INFORMATION
  Report Type: Spontaneous
  Country: JP (occurrence: JP)
  Receive Date: 20151211
  Receipt Date: 20151211
  Transmission Date: 20160305
  Serious: Yes (Other)
  Sender: FDA-Public Use
  Company Number: JP-ACCORD-036071

PATIENT
  Age: 54 Year
  Sex: Female

DRUGS (4)
  1. FLUOROURACIL. [Suspect]
     Active Substance: FLUOROURACIL
     Indication: COLON CANCER STAGE IV
     Dosage: BI-WEEKLY
  2. FOLINIC ACID [Suspect]
     Active Substance: LEUCOVORIN
     Indication: COLON CANCER STAGE IV
     Dosage: BI-WEEKLY
  3. BEVACIZUMAB [Suspect]
     Active Substance: BEVACIZUMAB
     Indication: COLON CANCER STAGE IV
     Dosage: BI-WEEKLY
  4. OXALIPLATIN. [Suspect]
     Active Substance: OXALIPLATIN
     Indication: COLON CANCER STAGE IV
     Dosage: BI-WEEKLY

REACTIONS (3)
  - Hypertension [Unknown]
  - Neutropenia [Unknown]
  - Large intestinal obstruction [Unknown]
